FAERS Safety Report 8435166-X (Version None)
Quarter: 2012Q2

REPORT INFORMATION
  Report Type: 
  Country: None (occurrence: None)
  Receive Date: 20120614
  Receipt Date: 20110809
  Transmission Date: 20120825
  Serious: No
  Sender: FDA-Public Use
  Company Number: US-PFIZER INC-K201100951

PATIENT

DRUGS (1)
  1. BICILLIN L-A [Suspect]
     Dosage: UNK
     Route: 030

REACTIONS (2)
  - INCORRECT STORAGE OF DRUG [None]
  - NO ADVERSE EVENT [None]
